FAERS Safety Report 6506374-X (Version None)
Quarter: 2009Q4

REPORT INFORMATION
  Report Type: 
  Country: None (occurrence: None)
  Receive Date: 20091218
  Receipt Date: 20091208
  Transmission Date: 20100525
  Serious: Yes (Hospitalization, Other)
  Sender: FDA-Public Use
  Company Number: CH-ABBOTT-09P-151-0613387-00

PATIENT
  Age: 64 Year
  Sex: Male
  Weight: 67 kg

DRUGS (8)
  1. KALETRA [Suspect]
     Indication: HIV INFECTION
     Dosage: 2 DOSES OF 200MG/50MG DAILY
     Route: 048
     Dates: start: 20090729
  2. TRUVADA [Suspect]
     Indication: HIV INFECTION
     Dosage: 245MG/200MG DAILY
     Route: 048
     Dates: start: 20090729
  3. MEFLOQUINE HCL [Suspect]
     Indication: PROGRESSIVE MULTIFOCAL LEUKOENCEPHALOPATHY
     Route: 048
     Dates: start: 20091015, end: 20091018
  4. MEFLOQUINE HCL [Suspect]
     Dosage: 250MG WEEKLY
     Dates: start: 20091018
  5. MIRTAZAPINE [Suspect]
     Indication: PROGRESSIVE MULTIFOCAL LEUKOENCEPHALOPATHY
     Route: 048
     Dates: start: 20091015
  6. LEVETIRACETAM [Concomitant]
     Indication: EPILEPSY
     Route: 048
     Dates: start: 20090901
  7. THIAMINE HCL [Concomitant]
     Indication: DRUG USE FOR UNKNOWN INDICATION
     Route: 048
     Dates: start: 20090901
  8. SULFAMETHOXAZOLE AND TRIMETHOPRIM [Concomitant]
     Indication: PROPHYLAXIS
     Dosage: 1 DOSE 3 TIMES PER WEEK
     Route: 048
     Dates: start: 20091019

REACTIONS (15)
  - ABNORMAL BEHAVIOUR [None]
  - AGGRESSION [None]
  - APRAXIA [None]
  - COGNITIVE DISORDER [None]
  - CONFUSIONAL STATE [None]
  - DISTURBANCE IN ATTENTION [None]
  - FRONTOTEMPORAL DEMENTIA [None]
  - GRAND MAL CONVULSION [None]
  - HALLUCINATION [None]
  - IMMUNE RECONSTITUTION SYNDROME [None]
  - INCOHERENT [None]
  - NERVOUS SYSTEM DISORDER [None]
  - PERSECUTORY DELUSION [None]
  - PROGRESSIVE MULTIFOCAL LEUKOENCEPHALOPATHY [None]
  - VISUAL IMPAIRMENT [None]
